FAERS Safety Report 5552731-8 (Version None)
Quarter: 2007Q4

REPORT INFORMATION
  Report Type: 
  Country: None (occurrence: None)
  Receive Date: 20071210
  Receipt Date: 20071129
  Transmission Date: 20080405
  Serious: Yes (Other)
  Sender: FDA-Public Use
  Company Number: 100#08#2007-05008

PATIENT
  Age: 78 Year
  Sex: Male

DRUGS (3)
  1. LEFLUNOMIDE [Suspect]
     Indication: RHEUMATOID ARTHRITIS
     Dosage: 20 MG
  2. METHOTREXATE [Suspect]
     Indication: RHEUMATOID ARTHRITIS
  3. PREDNISONE [Concomitant]

REACTIONS (5)
  - ANAEMIA [None]
  - ENTEROBACTER PNEUMONIA [None]
  - PNEUMONIA [None]
  - PNEUMONIA STAPHYLOCOCCAL [None]
  - PULMONARY CAVITATION [None]
